FAERS Safety Report 18901805 (Version 2)
Quarter: 2021Q1

REPORT INFORMATION
  Report Type: Report from Study
  Country: RU (occurrence: RU)
  Receive Date: 20210216
  Receipt Date: 20210219
  Transmission Date: 20210420
  Serious: Yes (Disabling, Other)
  Sender: FDA-Public Use
  Company Number: RU-REGENERON PHARMACEUTICALS, INC.-2020-82657

PATIENT

DRUGS (2)
  1. LASER [Suspect]
     Active Substance: DEVICE
     Indication: RETINOPATHY OF PREMATURITY
     Dosage: LKS IN BOTH EYES, WAVELENGTH 532 NM, POWER 0.4 W INT
     Dates: start: 20191202, end: 20191202
  2. EYLEA [Suspect]
     Active Substance: AFLIBERCEPT
     Indication: RETINOPATHY OF PREMATURITY
     Dosage: 0.4 MG, ONCE, IN EACH EYE
     Route: 031
     Dates: start: 20191205, end: 20191205

REACTIONS (2)
  - Retinal detachment [Recovering/Resolving]
  - Retinal detachment [Not Recovered/Not Resolved]

NARRATIVE: CASE EVENT DATE: 20191212
